FAERS Safety Report 10330034 (Version 1)
Quarter: 2014Q3

REPORT INFORMATION
  Report Type: Spontaneous
  Country: US (occurrence: US)
  Receive Date: 20140721
  Receipt Date: 20140721
  Transmission Date: 20150326
  Serious: Yes (Other)
  Sender: FDA-Public Use
  Company Number: US-SA-2014SA094166

PATIENT
  Age: 34 Year
  Sex: Male
  Weight: 81.64 kg

DRUGS (12)
  1. INSPRA [Concomitant]
     Active Substance: EPLERENONE
  2. DRISDOL [Concomitant]
     Active Substance: ERGOCALCIFEROL
  3. CYANOCOBALAMIN. [Concomitant]
     Active Substance: CYANOCOBALAMIN
  4. WATER. [Concomitant]
     Active Substance: WATER
  5. NORMAL SALINE [Concomitant]
     Active Substance: SODIUM CHLORIDE
  6. FABRAZYME [Suspect]
     Active Substance: AGALSIDASE BETA
     Indication: FABRY^S DISEASE
     Route: 042
     Dates: start: 20120427
  7. EPIPEN [Concomitant]
     Active Substance: EPINEPHRINE
  8. FABRAZYME [Suspect]
     Active Substance: AGALSIDASE BETA
     Indication: FABRY^S DISEASE
     Route: 042
     Dates: start: 20120427
  9. SODIUM CHLORIDE. [Concomitant]
     Active Substance: SODIUM CHLORIDE
  10. MULTIVITAMINS [Concomitant]
     Active Substance: VITAMINS
  11. PLAVIX [Concomitant]
     Active Substance: CLOPIDOGREL BISULFATE
  12. LOSARTAN [Concomitant]
     Active Substance: LOSARTAN

REACTIONS (3)
  - Eye movement disorder [Recovered/Resolved]
  - Blood pressure immeasurable [Recovered/Resolved]
  - Pallor [Recovered/Resolved]

NARRATIVE: CASE EVENT DATE: 20140708
